FAERS Safety Report 23135158 (Version 1)
Quarter: 2023Q4

REPORT INFORMATION
  Report Type: Spontaneous
  Country: CN (occurrence: None)
  Receive Date: 20231101
  Receipt Date: 20231101
  Transmission Date: 20240110
  Serious: Yes (Other)
  Sender: FDA-Public Use
  Company Number: 2023A244303

PATIENT
  Age: 65 Year
  Sex: Female

DRUGS (4)
  1. OSIMERTINIB [Suspect]
     Active Substance: OSIMERTINIB
     Indication: Lung adenocarcinoma stage I
     Route: 048
  2. BEVACIZUMAB [Suspect]
     Active Substance: BEVACIZUMAB
     Indication: Lung adenocarcinoma stage I
     Dates: start: 202112
  3. DABRAFENIB [Concomitant]
     Active Substance: DABRAFENIB
     Dosage: (150 MG BID)
     Dates: start: 202205
  4. TRAMETINIB [Concomitant]
     Active Substance: TRAMETINIB
     Dosage: 2 MG QD
     Dates: start: 202205

REACTIONS (2)
  - Malignant neoplasm progression [Recovered/Resolved]
  - BRAF V600E mutation positive [Unknown]
